FAERS Safety Report 24251816 (Version 1)
Quarter: 2024Q3

REPORT INFORMATION
  Report Type: Spontaneous
  Country: NL (occurrence: NL)
  Receive Date: 20240827
  Receipt Date: 20240827
  Transmission Date: 20241017
  Serious: Yes (Other)
  Sender: ACCORD
  Company Number: None

PATIENT
  Age: 70 Year
  Sex: Male
  Weight: 92 kg

DRUGS (4)
  1. ATORVASTATIN [Suspect]
     Active Substance: ATORVASTATIN
     Indication: Post stroke seizure
     Dosage: 1 X PER DAY 1 PIECE
     Dates: start: 20240229
  2. CLOPIDOGREL [Suspect]
     Active Substance: CLOPIDOGREL BISULFATE
     Indication: Product used for unknown indication
     Dosage: 1X PER DAY 1 PIECE
     Dates: start: 20240229
  3. METFORMIN [Concomitant]
     Active Substance: METFORMIN HYDROCHLORIDE
     Dosage: MODIFIED-RELEASE TABLET, 500 MG (MILLIGRAM)
  4. PANTOPRAZOLE [Concomitant]
     Active Substance: PANTOPRAZOLE
     Dosage: 40MG

REACTIONS (13)
  - Chest pain [Not Recovered/Not Resolved]
  - Depressed mood [Recovering/Resolving]
  - Gait disturbance [Not Recovered/Not Resolved]
  - Constipation [Recovering/Resolving]
  - Muscular weakness [Not Recovered/Not Resolved]
  - Balance disorder [Not Recovered/Not Resolved]
  - Myalgia [Not Recovered/Not Resolved]
  - Hallucination [Recovering/Resolving]
  - Muscle spasms [Not Recovered/Not Resolved]
  - Faeces hard [Recovering/Resolving]
  - Hyperglycaemia [Recovering/Resolving]
  - Palpitations [Not Recovered/Not Resolved]
  - Haematochezia [Recovering/Resolving]
